FAERS Safety Report 9620086 (Version 3)
Quarter: 2013Q4

REPORT INFORMATION
  Report Type: Spontaneous
  Country: GB (occurrence: GB)
  Receive Date: 20131014
  Receipt Date: 20131101
  Transmission Date: 20140711
  Serious: Yes (Hospitalization, Other)
  Sender: FDA-Public Use
  Company Number: GB-UCBSA-100150

PATIENT
  Age: 64 Year
  Sex: Male

DRUGS (1)
  1. ROTIGOTINE [Suspect]
     Indication: PARKINSON^S DISEASE
     Route: 062
     Dates: start: 200606

REACTIONS (3)
  - Confusional state [Recovering/Resolving]
  - Hallucination [Recovered/Resolved]
  - Microangiopathy [Unknown]
